FAERS Safety Report 6675430-8 (Version None)
Quarter: 2010Q2

REPORT INFORMATION
  Report Type: 
  Country: None (occurrence: None)
  Receive Date: 20100409
  Receipt Date: 20100329
  Transmission Date: 20101027
  Serious: Yes (Hospitalization)
  Sender: FDA-Public Use
  Company Number: US-JNJFOC-20100400545

PATIENT
  Sex: Female

DRUGS (4)
  1. EXTRA STRENGTH TYLENOL [Suspect]
     Route: 048
  2. EXTRA STRENGTH TYLENOL [Suspect]
     Indication: RHEUMATOID ARTHRITIS
     Route: 048
  3. TYLENOL [Suspect]
     Route: 048
  4. TYLENOL [Suspect]
     Indication: RHEUMATOID ARTHRITIS
     Route: 048

REACTIONS (13)
  - ABDOMINAL DISTENSION [None]
  - ABDOMINAL PAIN UPPER [None]
  - BLOOD PRESSURE INCREASED [None]
  - DECREASED APPETITE [None]
  - DIARRHOEA [None]
  - DIZZINESS [None]
  - DYSPNOEA [None]
  - DYSSTASIA [None]
  - FATIGUE [None]
  - GASTROINTESTINAL PAIN [None]
  - HYPERHIDROSIS [None]
  - NAUSEA [None]
  - PRODUCT QUALITY ISSUE [None]
